FAERS Safety Report 19251867 (Version 3)
Quarter: 2021Q2

REPORT INFORMATION
  Report Type: Spontaneous
  Country: SK (occurrence: SK)
  Receive Date: 20210513
  Receipt Date: 20210603
  Transmission Date: 20210717
  Serious: Yes (Death, Hospitalization)
  Sender: FDA-Public Use
  Company Number: SK-ROCHE-2828852

PATIENT
  Age: 41 Year
  Sex: Female

DRUGS (1)
  1. TECENTRIQ [Suspect]
     Active Substance: ATEZOLIZUMAB
     Indication: TRIPLE NEGATIVE BREAST CANCER
     Dosage: LAST DOSE DATE PRIOR TO AE: 19/APR/2021?CONCENTRATE FOR INFUSION 1X14 ML/840 MG
     Route: 041
     Dates: start: 20210419, end: 20210419

REACTIONS (3)
  - Hepatic failure [Fatal]
  - Condition aggravated [Fatal]
  - Respiratory failure [Fatal]

NARRATIVE: CASE EVENT DATE: 20210428
